FAERS Safety Report 7231924-8 (Version None)
Quarter: 2011Q1

REPORT INFORMATION
  Report Type: 
  Country: None (occurrence: None)
  Receive Date: 20110118
  Receipt Date: 20110111
  Transmission Date: 20110831
  Serious: Yes (Other)
  Sender: FDA-Public Use
  Company Number: PT-PFIZER INC-2011007902

PATIENT
  Sex: Male

DRUGS (1)
  1. LYRICA [Suspect]
     Dosage: 25 MG, 1X/DAY
     Route: 048

REACTIONS (3)
  - HYPOGLYCAEMIA [None]
  - PRESYNCOPE [None]
  - ROAD TRAFFIC ACCIDENT [None]
